FAERS Safety Report 25229311 (Version 1)
Quarter: 2025Q2

REPORT INFORMATION
  Report Type: Spontaneous
  Country: US (occurrence: US)
  Receive Date: 20250423
  Receipt Date: 20250423
  Transmission Date: 20250717
  Serious: Yes (Other)
  Sender: MYLAN
  Company Number: US-MYLANLABS-2025M1031990

PATIENT
  Age: 55 Year

DRUGS (5)
  1. PHENYTEK [Suspect]
     Active Substance: PHENYTOIN SODIUM
     Indication: Seizure
     Dosage: 300 MILLIGRAM, BID (1 PILL IN MORNING AND 1 PILL AT NIGHT)
     Dates: start: 20250303, end: 20250409
  2. KEPPRA [Suspect]
     Active Substance: LEVETIRACETAM
     Indication: Seizure
  3. DIAZEPAM [Concomitant]
     Active Substance: DIAZEPAM
     Dosage: UNK, QD (1 PILL A DAY (1/2 MORNING 1/2 AT NIGHT) .05 TOTAL)
  4. VALIUM [Concomitant]
     Active Substance: DIAZEPAM
  5. LORAZEPAM [Concomitant]
     Active Substance: LORAZEPAM

REACTIONS (9)
  - Suicidal ideation [Recovered/Resolved]
  - Accidental poisoning [Recovering/Resolving]
  - Disturbance in attention [Recovered/Resolved]
  - Feeding disorder [Recovering/Resolving]
  - Depression [Recovering/Resolving]
  - Mania [Recovering/Resolving]
  - Anxiety [Recovered/Resolved]
  - Tremor [Recovering/Resolving]
  - Nervousness [Recovering/Resolving]

NARRATIVE: CASE EVENT DATE: 20250408
